FAERS Safety Report 15966500 (Version 1)
Quarter: 2019Q1

REPORT INFORMATION
  Report Type: Spontaneous
  Country: US (occurrence: US)
  Receive Date: 20190215
  Receipt Date: 20190215
  Transmission Date: 20190418
  Serious: No
  Sender: FDA-Public Use
  Company Number: US-SHIRE-US201904870

PATIENT
  Sex: Female

DRUGS (3)
  1. RESTASIS [Concomitant]
     Active Substance: CYCLOSPORINE
     Indication: PRODUCT USED FOR UNKNOWN INDICATION
  2. LOTEMAX [Concomitant]
     Active Substance: LOTEPREDNOL ETABONATE
     Indication: PRODUCT USED FOR UNKNOWN INDICATION
  3. XIIDRA [Suspect]
     Active Substance: LIFITEGRAST
     Indication: DRY EYE
     Route: 047

REACTIONS (12)
  - Headache [Unknown]
  - Gingival discomfort [Unknown]
  - Sinusitis [Unknown]
  - Instillation site reaction [Unknown]
  - Dysgeusia [Unknown]
  - Swollen tear duct [Unknown]
  - Dry throat [Unknown]
  - Vision blurred [Unknown]
  - Migraine [Unknown]
  - Instillation site foreign body sensation [Unknown]
  - Gingival pain [Unknown]
  - Eyelid pain [Unknown]
